FAERS Safety Report 10037135 (Version 1)
Quarter: 2014Q1

REPORT INFORMATION
  Report Type: Spontaneous
  Country: US (occurrence: None)
  Receive Date: 20140325
  Receipt Date: 20140325
  Transmission Date: 20141002
  Serious: No
  Sender: FDA-Public Use
  Company Number: None

PATIENT
  Age: 37 Year
  Sex: Female
  Weight: 52.16 kg

DRUGS (1)
  1. LEVAQUIN [Suspect]
     Indication: RESPIRATORY TRACT INFECTION
     Dosage: ONE PILL ONCE DAILY TAKEN BY MOUTH.
     Dates: start: 20140324

REACTIONS (6)
  - Insomnia [None]
  - Anxiety [None]
  - Paranoia [None]
  - Confusional state [None]
  - Fear [None]
  - Psychotic disorder [None]
